FAERS Safety Report 13523906 (Version 1)
Quarter: 2017Q2

REPORT INFORMATION
  Report Type: Spontaneous
  Country: US (occurrence: US)
  Receive Date: 20170508
  Receipt Date: 20170508
  Transmission Date: 20170830
  Serious: No
  Sender: FDA-Public Use
  Company Number: US-VIFOR (INTERNATIONAL) INC.-VIT-2017-02178

PATIENT
  Sex: Male

DRUGS (14)
  1. ERGOCALCIFEROL. [Concomitant]
     Active Substance: ERGOCALCIFEROL
  2. FUROSEMIDE. [Concomitant]
     Active Substance: FUROSEMIDE
  3. LEVEMIR [Concomitant]
     Active Substance: INSULIN DETEMIR
  4. VELTASSA [Suspect]
     Active Substance: PATIROMER
     Indication: HYPERKALAEMIA
     Route: 048
     Dates: start: 20160825
  5. ACETYLSALICYLIC ACID [Concomitant]
     Active Substance: ASPIRIN
  6. LOVASTATIN. [Concomitant]
     Active Substance: LOVASTATIN
  7. SPIRONOLACTONE. [Concomitant]
     Active Substance: SPIRONOLACTONE
  8. METOPROLOL. [Concomitant]
     Active Substance: METOPROLOL
  9. RENVELA [Concomitant]
     Active Substance: SEVELAMER CARBONATE
  10. DULCOLAX NOS [Concomitant]
     Active Substance: BISACODYL OR DOCUSATE SODIUM
  11. VICTOZA [Concomitant]
     Active Substance: LIRAGLUTIDE
  12. PROCARDIA [Concomitant]
     Active Substance: NIFEDIPINE
  13. COLECALCIFEROL [Concomitant]
     Active Substance: CHOLECALCIFEROL
  14. GLIPIZIDE. [Concomitant]
     Active Substance: GLIPIZIDE

REACTIONS (1)
  - Drug dose omission [Unknown]
